FAERS Safety Report 7240631-7 (Version None)
Quarter: 2011Q1

REPORT INFORMATION
  Report Type: 
  Country: None (occurrence: None)
  Receive Date: 20110124
  Receipt Date: 20110118
  Transmission Date: 20110831
  Serious: Yes (Other)
  Sender: FDA-Public Use
  Company Number: US-AMGEN-USASP2010004962

PATIENT
  Age: 43 Year
  Sex: Female

DRUGS (3)
  1. NORVASC [Concomitant]
  2. ENBREL [Suspect]
     Indication: PSORIASIS
     Dosage: 25 MG, 2 TIMES/WK
     Route: 058
     Dates: start: 20030101
  3. CELLCEPT [Concomitant]

REACTIONS (1)
  - ABORTION SPONTANEOUS [None]
